FAERS Safety Report 14297028 (Version 1)
Quarter: 2017Q4

REPORT INFORMATION
  Report Type: Spontaneous
  Country: US (occurrence: US)
  Receive Date: 20171218
  Receipt Date: 20171218
  Transmission Date: 20180321
  Serious: Yes (Hospitalization, Other)
  Sender: FDA-Public Use
  Company Number: US-GLAXOSMITHKLINE-US2017GSK193283

PATIENT
  Sex: Female

DRUGS (1)
  1. SORIATANE [Suspect]
     Active Substance: ACITRETIN
     Indication: PRODUCT USED FOR UNKNOWN INDICATION
     Dosage: UNK
     Dates: start: 20070101

REACTIONS (5)
  - Skin infection [Unknown]
  - Condition aggravated [Unknown]
  - Sinusitis [Unknown]
  - Device related infection [Unknown]
  - Skin disorder [Unknown]
